FAERS Safety Report 6163787-6 (Version None)
Quarter: 2009Q2

REPORT INFORMATION
  Report Type: 
  Country: None (occurrence: None)
  Receive Date: 20090422
  Receipt Date: 20090415
  Transmission Date: 20091009
  Serious: Yes (Hospitalization, Other)
  Sender: FDA-Public Use
  Company Number: US-JNJFOC-20090304924

PATIENT
  Sex: Female

DRUGS (19)
  1. FENTANYL TRANSDERMAL SYSTEM [Suspect]
     Indication: PAIN
     Route: 062
  2. FENTANYL TRANSDERMAL SYSTEM [Suspect]
     Indication: MUSCLE SPASMS
     Dosage: 100 UH/HR + 100 UG/HR
     Route: 062
  3. FLEXERIL [Suspect]
     Indication: BACK PAIN
     Route: 048
  4. REBIF [Suspect]
     Indication: MULTIPLE SCLEROSIS
     Route: 058
  5. BACLOFEN [Concomitant]
     Indication: MUSCLE SPASMS
     Dosage: AS NEEDED, ALSO REPORTED AS 4 TIMES A DAY
     Route: 048
  6. NEURONTIN [Concomitant]
     Indication: NEURALGIA
     Route: 048
  7. REMERON [Concomitant]
     Indication: SLEEP DISORDER THERAPY
     Dosage: AT NIGHT
     Route: 048
  8. XANAX [Concomitant]
     Indication: NERVOUSNESS
     Route: 048
  9. XANAX [Concomitant]
     Indication: SLEEP DISORDER THERAPY
     Dosage: 1/2 OF 1 MG TABLET AT NIGHT
     Route: 048
  10. ACTONEL [Concomitant]
     Indication: OSTEOPOROSIS
     Route: 048
  11. COUMADIN [Concomitant]
     Indication: THROMBOSIS
     Route: 048
  12. PRILOSEC [Concomitant]
     Indication: GASTROOESOPHAGEAL REFLUX DISEASE
     Route: 048
  13. PERCOCET [Concomitant]
     Indication: BREAKTHROUGH PAIN
     Dosage: 10-325 MG TABLETS 5 DAILY AS NEEDED
     Route: 048
  14. ZOLOFT [Concomitant]
     Indication: DEPRESSION
     Route: 048
  15. REBIF [Concomitant]
     Route: 058
  16. BOTOX [Concomitant]
     Indication: MUSCLE SPASMS
     Dosage: AS NEEDED
     Route: 065
  17. VITAMIN B-12 [Concomitant]
     Route: 030
  18. VITAMIN D [Concomitant]
     Indication: VITAMIN D DEFICIENCY
     Route: 048
  19. UNKNOWN DRUG [Concomitant]
     Indication: DEPRESSION

REACTIONS (11)
  - AORTIC ANEURYSM [None]
  - BACK INJURY [None]
  - DISORIENTATION [None]
  - HALLUCINATION [None]
  - INADEQUATE ANALGESIA [None]
  - MEMORY IMPAIRMENT [None]
  - SLEEP DISORDER [None]
  - SPINAL COMPRESSION FRACTURE [None]
  - THINKING ABNORMAL [None]
  - THIRST [None]
  - THROMBOSIS [None]
